FAERS Safety Report 9374648 (Version 1)
Quarter: 2013Q2

REPORT INFORMATION
  Report Type: Spontaneous
  Country: CA (occurrence: CA)
  Receive Date: 20130628
  Receipt Date: 20130628
  Transmission Date: 20140414
  Serious: Yes (Other)
  Sender: FDA-Public Use
  Company Number: CA-PFIZER INC-2013189800

PATIENT
  Sex: Female

DRUGS (1)
  1. ADVIL EXTRA STRENGTH LIQUI-GELS [Suspect]
     Dosage: UNK
     Dates: start: 20130624

REACTIONS (3)
  - Choking [Unknown]
  - Dysphagia [Unknown]
  - Product size issue [Unknown]
